FAERS Safety Report 19051038 (Version 1)
Quarter: 2021Q1

REPORT INFORMATION
  Report Type: Spontaneous
  Country: US (occurrence: US)
  Receive Date: 20210323
  Receipt Date: 20210323
  Transmission Date: 20210420
  Serious: Yes (Other)
  Sender: FDA-Public Use
  Company Number: None

PATIENT
  Age: 44 Year
  Sex: Female
  Weight: 66.68 kg

DRUGS (1)
  1. BUPRENORPHINE 20MCG PATCH [Suspect]
     Active Substance: BUPRENORPHINE
     Indication: SYSTEMIC LUPUS ERYTHEMATOSUS
     Dosage: OTHER ROUTE:PATCH?
     Dates: start: 20001015, end: 20210222

REACTIONS (4)
  - Inadequate analgesia [None]
  - Product substitution issue [None]
  - Drug ineffective [None]
  - Product adhesion issue [None]

NARRATIVE: CASE EVENT DATE: 20201015
